FAERS Safety Report 10224498 (Version 2)
Quarter: 2014Q2

REPORT INFORMATION
  Report Type: Spontaneous
  Country: US (occurrence: None)
  Receive Date: 20140605
  Receipt Date: 20140623
  Transmission Date: 20141212
  Serious: Yes (Other)
  Sender: FDA-Public Use
  Company Number: 2014P1004620

PATIENT
  Age: 21 Year
  Sex: Female

DRUGS (2)
  1. MYORISAN [Suspect]
     Dates: start: 20140108, end: 20140520
  2. UNSPECIFIED BIRTH CONTROL PILLS [Concomitant]

REACTIONS (3)
  - Treatment noncompliance [None]
  - Maternal exposure during pregnancy [None]
  - Pregnancy on oral contraceptive [None]
